FAERS Safety Report 9022199 (Version 1)
Quarter: 2013Q1

REPORT INFORMATION
  Report Type: Spontaneous
  Country: GB (occurrence: GB)
  Receive Date: 20130118
  Receipt Date: 20130118
  Transmission Date: 20140127
  Serious: Yes (Hospitalization)
  Sender: FDA-Public Use
  Company Number: GB-TEVA-380312ISR

PATIENT
  Age: 81 Year
  Sex: Female

DRUGS (10)
  1. TRIMETHOPRIM [Suspect]
     Indication: URINARY TRACT INFECTION
     Route: 048
     Dates: start: 20121115, end: 20121122
  2. BENDROFLUMETHIAZIDE [Concomitant]
     Dosage: LONG TERM
     Route: 048
  3. FERROUS SULPHATE [Concomitant]
     Dosage: AT NIGHT. LONG TERM
     Route: 048
  4. ALFACALCIDOL [Concomitant]
     Dosage: LONG TERM
     Route: 048
  5. ISOSORBIDE MONONITRATE [Concomitant]
     Dosage: IN THE MORNING. LONG TERM
     Route: 048
  6. OMEPRAZOLE [Concomitant]
     Dosage: LONG TERM
     Route: 048
  7. BISOPROLOL [Concomitant]
  8. CALCIUM CARBONATE [Concomitant]
  9. PRAVASTATIN [Concomitant]
     Dosage: IN THE MORNINING
  10. WARFARIN [Concomitant]
     Dosage: AS PER INTERNATIONAL NORMALISED RATIO

REACTIONS (4)
  - Renal impairment [Not Recovered/Not Resolved]
  - Blood creatinine increased [Not Recovered/Not Resolved]
  - Rash [Not Recovered/Not Resolved]
  - Contusion [Not Recovered/Not Resolved]
